FAERS Safety Report 11567514 (Version 1)
Quarter: 2015Q3

REPORT INFORMATION
  Report Type: Spontaneous
  Country: US (occurrence: US)
  Receive Date: 20150916
  Receipt Date: 20150916
  Transmission Date: 20151125
  Serious: No
  Sender: FDA-Public Use
  Company Number: US-ELI_LILLY_AND_COMPANY-US200907005181

PATIENT
  Sex: Female

DRUGS (3)
  1. FORTEO [Suspect]
     Active Substance: TERIPARATIDE
     Dates: start: 200907
  2. NEUTROGENA                         /00425401/ [Concomitant]
  3. ALCOHOL. [Concomitant]
     Active Substance: ALCOHOL

REACTIONS (5)
  - Skin reaction [Unknown]
  - Urticaria [Unknown]
  - Blister [Unknown]
  - Immune system disorder [Unknown]
  - Skin burning sensation [Unknown]

NARRATIVE: CASE EVENT DATE: 200907
